FAERS Safety Report 8191894-5 (Version None)
Quarter: 2012Q1

REPORT INFORMATION
  Report Type: 
  Country: None (occurrence: None)
  Receive Date: 20120307
  Receipt Date: 20120227
  Transmission Date: 20120608
  Serious: Yes (Hospitalization)
  Sender: FDA-Public Use
  Company Number: PHHY2012AU007100

PATIENT
  Sex: Female

DRUGS (1)
  1. ZOLEDRONOC ACID [Suspect]
     Route: 042
     Dates: start: 20120113

REACTIONS (10)
  - BLOOD PRESSURE DECREASED [None]
  - PAIN [None]
  - MALAISE [None]
  - WEIGHT BEARING DIFFICULTY [None]
  - JOINT SWELLING [None]
  - BONE PAIN [None]
  - URINARY TRACT INFECTION [None]
  - VOMITING [None]
  - DYSPNOEA [None]
  - RALES [None]
